FAERS Safety Report 20142304 (Version 3)
Quarter: 2022Q2

REPORT INFORMATION
  Report Type: Other
  Country: CA (occurrence: CA)
  Receive Date: 20211202
  Receipt Date: 20220503
  Transmission Date: 20220720
  Serious: Yes (Hospitalization, Other)
  Sender: FDA-Public Use
  Company Number: CA-NAPPMUNDI-GBR-2021-0093006

PATIENT
  Age: 39 Year
  Sex: Female

DRUGS (70)
  1. MORPHINE SULFATE [Suspect]
     Active Substance: MORPHINE SULFATE
     Indication: Drug use disorder
     Dosage: UNK
     Route: 048
  2. MORPHINE SULFATE [Suspect]
     Active Substance: MORPHINE SULFATE
     Dosage: 360 MG, UNK
     Route: 048
  3. MORPHINE SULFATE [Suspect]
     Active Substance: MORPHINE SULFATE
     Dosage: UNK, Q2H
     Route: 048
  4. MORPHINE SULFATE [Suspect]
     Active Substance: MORPHINE SULFATE
     Dosage: 30 MG, UNK
     Route: 048
  5. MORPHINE SULFATE [Suspect]
     Active Substance: MORPHINE SULFATE
     Dosage: 400 MG, UNK
     Route: 048
  6. MORPHINE SULFATE [Suspect]
     Active Substance: MORPHINE SULFATE
     Dosage: 300 MG, UNK
     Route: 048
  7. MORPHINE SULFATE [Suspect]
     Active Substance: MORPHINE SULFATE
     Dosage: 100 MG, UNK
     Route: 048
  8. MORPHINE SULFATE [Suspect]
     Active Substance: MORPHINE SULFATE
     Dosage: 600 MG, UNK
     Route: 048
  9. MORPHINE SULFATE [Suspect]
     Active Substance: MORPHINE SULFATE
     Dosage: UNK
     Route: 048
  10. MORPHINE SULFATE [Suspect]
     Active Substance: MORPHINE SULFATE
     Dosage: 360 MG, UNK
     Route: 048
  11. MORPHINE SULFATE [Suspect]
     Active Substance: MORPHINE SULFATE
     Dosage: UNK, Q2H
     Route: 048
  12. MORPHINE SULFATE [Suspect]
     Active Substance: MORPHINE SULFATE
     Dosage: 30 MG, UNK
     Route: 048
  13. MORPHINE SULFATE [Suspect]
     Active Substance: MORPHINE SULFATE
     Dosage: 400 MG, UNK
     Route: 048
  14. MORPHINE SULFATE [Suspect]
     Active Substance: MORPHINE SULFATE
     Dosage: 300 MG, UNK
     Route: 048
  15. MORPHINE SULFATE [Suspect]
     Active Substance: MORPHINE SULFATE
     Dosage: 100 MG, UNK
     Route: 048
  16. MORPHINE SULFATE [Suspect]
     Active Substance: MORPHINE SULFATE
     Dosage: 600 MG, UNK
     Route: 048
  17. HYDROMORPHONE HYDROCHLORIDE [Suspect]
     Active Substance: HYDROMORPHONE HYDROCHLORIDE
     Indication: Drug use disorder
     Dosage: 75 MG, BID
     Route: 065
  18. HYDROMORPHONE HYDROCHLORIDE [Suspect]
     Active Substance: HYDROMORPHONE HYDROCHLORIDE
     Indication: Product used for unknown indication
     Dosage: 90 MG, BID
     Route: 030
  19. HYDROMORPHONE HYDROCHLORIDE [Suspect]
     Active Substance: HYDROMORPHONE HYDROCHLORIDE
     Dosage: 10 MG, UNK
     Route: 042
  20. HYDROMORPHONE HYDROCHLORIDE [Suspect]
     Active Substance: HYDROMORPHONE HYDROCHLORIDE
     Dosage: 10 MG, UNK
     Route: 030
  21. HYDROMORPHONE HYDROCHLORIDE [Suspect]
     Active Substance: HYDROMORPHONE HYDROCHLORIDE
     Dosage: 90 MG, BID
     Route: 042
  22. HYDROMORPHONE HYDROCHLORIDE [Suspect]
     Active Substance: HYDROMORPHONE HYDROCHLORIDE
     Dosage: 75 MG (EVERY 5 DAYS)
     Route: 042
  23. HYDROMORPHONE HYDROCHLORIDE [Suspect]
     Active Substance: HYDROMORPHONE HYDROCHLORIDE
     Dosage: 75 MG, BID
     Route: 065
  24. HYDROMORPHONE HYDROCHLORIDE [Suspect]
     Active Substance: HYDROMORPHONE HYDROCHLORIDE
     Dosage: 10 MG, BID
     Route: 030
  25. HYDROMORPHONE HYDROCHLORIDE [Suspect]
     Active Substance: HYDROMORPHONE HYDROCHLORIDE
     Dosage: 10 MG, BID
     Route: 065
  26. HYDROMORPHONE HYDROCHLORIDE [Suspect]
     Active Substance: HYDROMORPHONE HYDROCHLORIDE
     Dosage: 90 MG, BID
     Route: 030
  27. HYDROMORPHONE HYDROCHLORIDE [Suspect]
     Active Substance: HYDROMORPHONE HYDROCHLORIDE
     Dosage: 10 MG, UNK
     Route: 042
  28. HYDROMORPHONE HYDROCHLORIDE [Suspect]
     Active Substance: HYDROMORPHONE HYDROCHLORIDE
     Dosage: 10 MG, UNK
     Route: 030
  29. HYDROMORPHONE HYDROCHLORIDE [Suspect]
     Active Substance: HYDROMORPHONE HYDROCHLORIDE
     Dosage: 90 MG, BID
     Route: 042
  30. HYDROMORPHONE HYDROCHLORIDE [Suspect]
     Active Substance: HYDROMORPHONE HYDROCHLORIDE
     Dosage: 75 MG (EVERY 5 DAYS)
     Route: 042
  31. HYDROMORPHONE HYDROCHLORIDE [Suspect]
     Active Substance: HYDROMORPHONE HYDROCHLORIDE
     Dosage: 75 MG, BID
     Route: 065
  32. METHADONE [Suspect]
     Active Substance: METHADONE HYDROCHLORIDE
     Indication: Drug use disorder
     Dosage: 60 MG, UNK
     Route: 065
  33. METHADONE [Suspect]
     Active Substance: METHADONE HYDROCHLORIDE
     Dosage: 95 MG, UNK
     Route: 065
  34. METHADONE [Suspect]
     Active Substance: METHADONE HYDROCHLORIDE
     Dosage: 80 MG, UNK
     Route: 065
  35. METHADONE [Suspect]
     Active Substance: METHADONE HYDROCHLORIDE
     Dosage: 65 MG, UNK
     Route: 065
  36. METHADONE [Suspect]
     Active Substance: METHADONE HYDROCHLORIDE
     Dosage: 155 MG, UNK
     Route: 065
  37. METHADONE [Suspect]
     Active Substance: METHADONE HYDROCHLORIDE
     Dosage: 135 MG, UNK
     Route: 065
  38. METHADONE [Suspect]
     Active Substance: METHADONE HYDROCHLORIDE
     Dosage: 125 MG, UNK
     Route: 065
  39. METHADONE [Suspect]
     Active Substance: METHADONE HYDROCHLORIDE
     Dosage: 70 MG, UNK
     Route: 065
  40. METHADONE [Suspect]
     Active Substance: METHADONE HYDROCHLORIDE
     Dosage: 85 MG, UNK
     Route: 065
  41. METHADONE [Suspect]
     Active Substance: METHADONE HYDROCHLORIDE
     Dosage: 145 MG, UNK
     Route: 065
  42. METHADONE [Suspect]
     Active Substance: METHADONE HYDROCHLORIDE
     Dosage: 40 MG, UNK
     Route: 065
  43. METHADONE [Suspect]
     Active Substance: METHADONE HYDROCHLORIDE
     Dosage: 28 MG, UNK
     Route: 065
  44. METHADONE [Suspect]
     Active Substance: METHADONE HYDROCHLORIDE
     Dosage: 110 MG, UNK
     Route: 065
  45. METHADONE [Suspect]
     Active Substance: METHADONE HYDROCHLORIDE
     Dosage: 60 MG, DAILY
     Route: 065
  46. METHADONE [Suspect]
     Active Substance: METHADONE HYDROCHLORIDE
     Dosage: 50 MG, UNK
     Route: 065
  47. METHADONE [Suspect]
     Active Substance: METHADONE HYDROCHLORIDE
     Dosage: 90 MG, UNK
     Route: 065
  48. METHADONE [Suspect]
     Active Substance: METHADONE HYDROCHLORIDE
     Dosage: 95 MG, UNK
  49. METHADONE [Suspect]
     Active Substance: METHADONE HYDROCHLORIDE
     Dosage: 80 MG, UNK
     Route: 065
  50. METHADONE [Suspect]
     Active Substance: METHADONE HYDROCHLORIDE
     Dosage: 65 MG, UNK
     Route: 065
  51. METHADONE [Suspect]
     Active Substance: METHADONE HYDROCHLORIDE
     Dosage: 155 MG, UNK
     Route: 065
  52. METHADONE [Suspect]
     Active Substance: METHADONE HYDROCHLORIDE
     Dosage: 135 MG, UNK
     Route: 065
  53. METHADONE [Suspect]
     Active Substance: METHADONE HYDROCHLORIDE
     Dosage: 125 MG, UNK
     Route: 065
  54. METHADONE [Suspect]
     Active Substance: METHADONE HYDROCHLORIDE
     Dosage: 70 MG, UNK
     Route: 065
  55. METHADONE [Suspect]
     Active Substance: METHADONE HYDROCHLORIDE
     Dosage: 85 MG, UNK
     Route: 065
  56. METHADONE [Suspect]
     Active Substance: METHADONE HYDROCHLORIDE
     Dosage: 145 MG, UNK
     Route: 065
  57. METHADONE [Suspect]
     Active Substance: METHADONE HYDROCHLORIDE
     Dosage: 40 MG, UNK
     Route: 065
  58. METHADONE [Suspect]
     Active Substance: METHADONE HYDROCHLORIDE
     Dosage: 28 MG, UNK
     Route: 065
  59. METHADONE [Suspect]
     Active Substance: METHADONE HYDROCHLORIDE
     Dosage: 110 MG, UNK
     Route: 065
  60. METHADONE [Suspect]
     Active Substance: METHADONE HYDROCHLORIDE
     Dosage: 60 MG, DAILY
     Route: 065
  61. METHADONE [Suspect]
     Active Substance: METHADONE HYDROCHLORIDE
     Dosage: 50 MG, UNK
     Route: 065
  62. METHADONE [Suspect]
     Active Substance: METHADONE HYDROCHLORIDE
     Dosage: 90 MG, UNK
     Route: 065
  63. CANNABIS SATIVA FLOWERING TOP [Suspect]
     Active Substance: CANNABIS SATIVA FLOWERING TOP
     Indication: Product used for unknown indication
     Dosage: UNK
     Route: 065
  64. COCAINE [Suspect]
     Active Substance: COCAINE
     Indication: Product used for unknown indication
     Dosage: UNK
     Route: 065
  65. FENTANYL [Suspect]
     Active Substance: FENTANYL
     Indication: Drug abuse
     Dosage: 1 G, DAILY
     Route: 042
  66. LEVAMISOLE [Suspect]
     Active Substance: LEVAMISOLE
     Indication: Overdose
     Dosage: UNK
     Route: 065
  67. LEVAMISOLE [Suspect]
     Active Substance: LEVAMISOLE
     Indication: Drug abuse
  68. NALOXONE [Suspect]
     Active Substance: NALOXONE
     Indication: Drug therapy
     Dosage: UNK
     Route: 065
  69. FENTANYL [Concomitant]
     Active Substance: FENTANYL
     Dosage: UNK
     Route: 042
  70. NALOXONE [Concomitant]
     Active Substance: NALOXONE
     Dosage: UNK
     Route: 065

REACTIONS (13)
  - Drug dependence [Not Recovered/Not Resolved]
  - Drug effective for unapproved indication [Not Recovered/Not Resolved]
  - Hyperhidrosis [Not Recovered/Not Resolved]
  - Maternal exposure during delivery [Not Recovered/Not Resolved]
  - Maternal exposure during pregnancy [Not Recovered/Not Resolved]
  - Off label use [Not Recovered/Not Resolved]
  - Overdose [Not Recovered/Not Resolved]
  - Restlessness [Not Recovered/Not Resolved]
  - Rhinorrhoea [Not Recovered/Not Resolved]
  - Withdrawal syndrome [Not Recovered/Not Resolved]
  - Drug abuse [Recovered/Resolved]
  - Drug use disorder [Recovered/Resolved]
  - Drug withdrawal syndrome [Recovered/Resolved]
